FAERS Safety Report 9895805 (Version 1)
Quarter: 2014Q1

REPORT INFORMATION
  Report Type: Spontaneous
  Country: US (occurrence: US)
  Receive Date: 20140213
  Receipt Date: 20140213
  Transmission Date: 20141002
  Serious: No
  Sender: FDA-Public Use
  Company Number: US-BRISTOL-MYERS SQUIBB COMPANY-19543131

PATIENT
  Age: 69 Year
  Sex: Female
  Weight: 80.72 kg

DRUGS (4)
  1. ORENCIA [Suspect]
     Indication: RHEUMATOID ARTHRITIS
     Dosage: LAST INFUSION : 22AUG2013
     Route: 042
     Dates: start: 201207, end: 20130822
  2. HUMIRA [Concomitant]
  3. REMICADE [Concomitant]
  4. ACTEMRA [Concomitant]

REACTIONS (3)
  - Drug ineffective [Unknown]
  - Weight fluctuation [Unknown]
  - Malaise [Unknown]
